FAERS Safety Report 9786193 (Version 2)
Quarter: 2014Q1

REPORT INFORMATION
  Report Type: Spontaneous
  Country: US (occurrence: US)
  Receive Date: 20131227
  Receipt Date: 20140103
  Transmission Date: 20141002
  Serious: Yes (Other)
  Sender: FDA-Public Use
  Company Number: US-BRISTOL-MYERS SQUIBB COMPANY-19945799

PATIENT
  Age: 33 Year
  Sex: Male
  Weight: 141.5 kg

DRUGS (4)
  1. ABILIFY TABS [Suspect]
     Indication: SCHIZOPHRENIA
     Dosage: 1DF=20OR30MG?INT?RESTARTED 29JUL13-20MG
     Route: 048
     Dates: start: 20130612
  2. ABILIFY MAINTENA INJECTION [Suspect]
     Indication: SCHIZOPHRENIA
     Dosage: DEPOT
     Route: 030
     Dates: start: 20130626
  3. BUSPAR [Concomitant]
  4. XANAX [Concomitant]

REACTIONS (3)
  - Hallucination, auditory [Unknown]
  - Agitation [Unknown]
  - Anger [Unknown]
